FAERS Safety Report 5783203-3 (Version None)
Quarter: 2008Q2

REPORT INFORMATION
  Report Type: 
  Country: None (occurrence: None)
  Receive Date: 20080605
  Receipt Date: 20080418
  Transmission Date: 20081010
  Serious: No
  Sender: FDA-Public Use
  Company Number: A0715141A

PATIENT
  Age: 42 Year
  Sex: Female

DRUGS (2)
  1. ALLI [Suspect]
     Dates: start: 20080227
  2. MULTI-VITAMIN [Concomitant]

REACTIONS (4)
  - ABDOMINAL DISTENSION [None]
  - FAECES DISCOLOURED [None]
  - FREQUENT BOWEL MOVEMENTS [None]
  - PHARMACEUTICAL PRODUCT COMPLAINT [None]
